FAERS Safety Report 5997846-5 (Version None)
Quarter: 2008Q4

REPORT INFORMATION
  Report Type: 
  Country: None (occurrence: None)
  Receive Date: 20081212
  Receipt Date: 20081124
  Transmission Date: 20090506
  Serious: No
  Sender: FDA-Public Use
  Company Number: US-ABBOTT-08P-163-0489494-00

PATIENT
  Sex: Female
  Weight: 90.8 kg

DRUGS (4)
  1. HUMIRA [Suspect]
     Indication: RHEUMATOID ARTHRITIS
     Route: 058
     Dates: start: 20081123
  2. PREDNISONE TAB [Concomitant]
     Indication: RHEUMATOID ARTHRITIS
     Route: 048
  3. CELEXA [Concomitant]
     Indication: ANXIETY
     Route: 048
  4. CELEXA [Concomitant]
     Indication: OBSESSIVE-COMPULSIVE DISORDER

REACTIONS (1)
  - INJECTION SITE ERYTHEMA [None]
